FAERS Safety Report 11454595 (Version 1)
Quarter: 2015Q3

REPORT INFORMATION
  Report Type: Spontaneous
  Country: US (occurrence: US)
  Receive Date: 20150831
  Receipt Date: 20150831
  Transmission Date: 20151125
  Serious: No
  Sender: FDA-Public Use
  Company Number: US-ELI_LILLY_AND_COMPANY-US201004006234

PATIENT
  Sex: Female

DRUGS (3)
  1. WARFARIN [Concomitant]
     Active Substance: WARFARIN
  2. CYMBALTA [Suspect]
     Active Substance: DULOXETINE HYDROCHLORIDE
     Indication: NEURALGIA
     Dosage: 30 MG, DAILY (1/D)
     Route: 048
  3. VITAMINS [Concomitant]
     Active Substance: VITAMINS

REACTIONS (3)
  - Off label use [Unknown]
  - Diarrhoea [Recovered/Resolved]
  - Chills [Recovered/Resolved]
